FAERS Safety Report 10220879 (Version 1)
Quarter: 2014Q2

REPORT INFORMATION
  Report Type: Spontaneous
  Country: US (occurrence: US)
  Receive Date: 20140606
  Receipt Date: 20140606
  Transmission Date: 20141212
  Serious: No
  Sender: FDA-Public Use
  Company Number: US-PFIZER INC-2014152731

PATIENT
  Age: 36 Year
  Sex: Female
  Weight: 81.18 kg

DRUGS (3)
  1. ADVIL [Suspect]
     Indication: MUSCLE STRAIN
     Dosage: 600 MG (200MG X 3 TABLETS), ONCE
     Dates: start: 20140529, end: 20140529
  2. ZYRTEC-D [Concomitant]
     Indication: HYPERSENSITIVITY
     Dosage: 5 MG (CETIRIZINE) /120 MG (PSEUDOEPHEDRINE), AS NEEDED
  3. ZANTAC [Concomitant]
     Dosage: 75 MG, DAILY

REACTIONS (3)
  - Extra dose administered [Unknown]
  - Pruritus [Recovering/Resolving]
  - Urticaria [Recovering/Resolving]
